FAERS Safety Report 7250005-0 (Version None)
Quarter: 2011Q1

REPORT INFORMATION
  Report Type: 
  Country: None (occurrence: None)
  Receive Date: 20110128
  Receipt Date: 20110121
  Transmission Date: 20110831
  Serious: Yes (Hospitalization)
  Sender: FDA-Public Use
  Company Number: FR-KINGPHARMUSA00001-K201100096

PATIENT

DRUGS (7)
  1. ENOXAPARIN SODIUM [Concomitant]
     Dosage: 200 MG, QD
     Route: 058
     Dates: start: 20100903, end: 20100912
  2. INVESTIGATIONAL DRUG [Concomitant]
     Dosage: 10 MG, QD
     Dates: start: 20100903
  3. WARFARIN SODIUM [Concomitant]
     Dosage: 6 MG, QD
     Route: 048
     Dates: start: 20100904
  4. ATORVASTATIN [Concomitant]
     Dosage: UNK
     Dates: start: 20100902
  5. ALTACE [Suspect]
     Dosage: UNK
     Route: 048
     Dates: start: 20100902
  6. BELOC ZOK [Suspect]
     Dosage: 25 MG, QD
     Route: 048
     Dates: start: 20100906, end: 20101118
  7. PLACEBO [Concomitant]
     Dosage: UNK MG, UNK
     Dates: start: 20100904

REACTIONS (2)
  - BRADYCARDIA [None]
  - VENTRICULAR EXTRASYSTOLES [None]
